FAERS Safety Report 4747609-3 (Version None)
Quarter: 2005Q3

REPORT INFORMATION
  Report Type: 
  Country: None (occurrence: None)
  Receive Date: 20050818
  Receipt Date: 20041222
  Transmission Date: 20060218
  Serious: No
  Sender: FDA-Public Use
  Company Number: US-BRISTOL-MYERS SQUIBB COMPANY-12804241

PATIENT
  Age: 59 Year
  Sex: Male
  Weight: 75 kg

DRUGS (3)
  1. TEQUIN [Suspect]
     Indication: SINUSITIS
     Route: 048
     Dates: start: 20041221, end: 20041221
  2. TEQUIN [Suspect]
     Indication: LUNG INFECTION
     Route: 048
     Dates: start: 20041221, end: 20041221
  3. AUGMENTIN '125' [Concomitant]
     Route: 048
     Dates: start: 20041201, end: 20041201

REACTIONS (1)
  - VOMITING [None]
